FAERS Safety Report 8624243-6 (Version None)
Quarter: 2012Q3

REPORT INFORMATION
  Report Type: 
  Country: None (occurrence: None)
  Receive Date: 20120824
  Receipt Date: 20120824
  Transmission Date: 20120928
  Serious: Yes (Hospitalization)
  Sender: FDA-Public Use
  Company Number: None

PATIENT
  Age: 59 Year
  Sex: Male
  Weight: 90.5 kg

DRUGS (1)
  1. DAPTOMYCIN [Suspect]
     Indication: EOSINOPHILIC PNEUMONIA
     Dosage: 500 MG EVERY DAY IV
     Route: 042
     Dates: start: 20111201, end: 20111219

REACTIONS (1)
  - EOSINOPHILIC PNEUMONIA [None]
